FAERS Safety Report 24878572 (Version 3)
Quarter: 2025Q1

REPORT INFORMATION
  Report Type: Spontaneous
  Country: JP (occurrence: JP)
  Receive Date: 20250123
  Receipt Date: 20250226
  Transmission Date: 20250409
  Serious: Yes (Other)
  Sender: PFIZER
  Company Number: JP-PFIZER INC-202500015328

PATIENT
  Age: 25 Year
  Sex: Female

DRUGS (10)
  1. CIBINQO [Suspect]
     Active Substance: ABROCITINIB
     Indication: Dermatitis atopic
     Dosage: 100 MG, 1X/DAY
     Route: 048
     Dates: start: 20230225, end: 20230307
  2. CIBINQO [Suspect]
     Active Substance: ABROCITINIB
     Dosage: 200 MG, 1X/DAY
     Route: 048
     Dates: start: 20230308, end: 20240419
  3. CIBINQO [Suspect]
     Active Substance: ABROCITINIB
     Dosage: 200 MG, 1X/DAY
     Route: 048
     Dates: start: 20240501, end: 20241024
  4. CIBINQO [Suspect]
     Active Substance: ABROCITINIB
     Dosage: 100 MG, 1X/DAY
     Route: 048
     Dates: start: 20241025, end: 20250110
  5. DERMOSOL G [Concomitant]
     Route: 061
  6. DERMOSOL G [Concomitant]
     Dosage: 20 ML, 2X/DAY
     Route: 061
  7. HEPARINOID [Concomitant]
     Dosage: 200 G, 1X/DAY
     Route: 061
  8. LOCOID [Concomitant]
     Active Substance: HYDROCORTISONE BUTYRATE
     Dosage: 5 G, 2X/DAY
     Route: 061
  9. RINDERON V [Concomitant]
     Active Substance: BETAMETHASONE VALERATE
     Dosage: 15 G, 1X/DAY
     Route: 061
  10. ZINC OXIDE [Concomitant]
     Active Substance: ZINC OXIDE
     Route: 061

REACTIONS (2)
  - Renal impairment [Unknown]
  - Herpes zoster [Unknown]

NARRATIVE: CASE EVENT DATE: 20240419
